FAERS Safety Report 16476585 (Version 1)
Quarter: 2019Q2

REPORT INFORMATION
  Report Type: Spontaneous
  Country: CA (occurrence: CA)
  Receive Date: 20190626
  Receipt Date: 20190626
  Transmission Date: 20190711
  Serious: Yes (Other)
  Sender: FDA-Public Use
  Company Number: CA-AUROBINDO-AUR-APL-2019-035401

PATIENT

DRUGS (1)
  1. OLANZAPINE. [Suspect]
     Active Substance: OLANZAPINE
     Indication: ANXIETY
     Dosage: 5.0 MILLIGRAM, TWO TIMES A DAY
     Route: 048

REACTIONS (3)
  - Loss of consciousness [Unknown]
  - Drug intolerance [Unknown]
  - Muscle twitching [Unknown]
